FAERS Safety Report 21229811 (Version 1)
Quarter: 2022Q3

REPORT INFORMATION
  Report Type: Spontaneous
  Country: US (occurrence: None)
  Receive Date: 20220818
  Receipt Date: 20220818
  Transmission Date: 20221027
  Serious: No
  Sender: FDA-Public Use
  Company Number: 2022A271833

PATIENT
  Sex: Male
  Weight: 77.1 kg

DRUGS (1)
  1. FARXIGA [Suspect]
     Active Substance: DAPAGLIFLOZIN PROPANEDIOL
     Indication: Nephropathy
     Route: 048
     Dates: start: 20210831, end: 2021

REACTIONS (2)
  - Renal disorder [Unknown]
  - Glomerular filtration rate abnormal [Unknown]
